FAERS Safety Report 21265139 (Version 2)
Quarter: 2022Q3

REPORT INFORMATION
  Report Type: Report from Study
  Country: CO (occurrence: CO)
  Receive Date: 20220829
  Receipt Date: 20220916
  Transmission Date: 20221027
  Serious: Yes (Other)
  Sender: FDA-Public Use
  Company Number: CO-BAYER-2022A050938

PATIENT
  Sex: Male

DRUGS (6)
  1. EYLEA [Suspect]
     Active Substance: AFLIBERCEPT
     Indication: Age-related macular degeneration
     Dosage: 2 MG, ONCE, RIGHT EYE, SOLUTION FOR INJECTION, STRENGTH: 40MG/ML
     Route: 031
     Dates: start: 20211113, end: 20211113
  2. EYLEA [Suspect]
     Active Substance: AFLIBERCEPT
     Dosage: 2 MG, ONCE, RIGHT EYE, SOLUTION FOR INJECTION, STRENGTH: 40MG/ML
     Route: 031
     Dates: start: 20220118, end: 20220118
  3. EYLEA [Suspect]
     Active Substance: AFLIBERCEPT
     Dosage: 2 MG, ONCE, RIGHT EYE, SOLUTION FOR INJECTION, STRENGTH: 40MG/ML
     Route: 031
     Dates: start: 20220216, end: 20220216
  4. EYLEA [Suspect]
     Active Substance: AFLIBERCEPT
     Dosage: 2 MG, ONCE, RIGHT EYE, SOLUTION FOR INJECTION, STRENGTH: 40MG/ML
     Route: 031
     Dates: start: 20220518, end: 20220518
  5. EYLEA [Suspect]
     Active Substance: AFLIBERCEPT
     Dosage: 2 MG, ONCE, RIGHT EYE, SOLUTION FOR INJECTION, STRENGTH: 40MG/ML
     Route: 031
     Dates: start: 20220624, end: 20220624
  6. EYLEA [Suspect]
     Active Substance: AFLIBERCEPT
     Dosage: 2 MG, ONCE, RIGHT EYE, SOLUTION FOR INJECTION, STRENGTH: 40MG/ML
     Route: 031
     Dates: start: 20220729, end: 20220729

REACTIONS (5)
  - Visual impairment [Recovered/Resolved]
  - Visual impairment [Not Recovered/Not Resolved]
  - Inappropriate schedule of product administration [Not Recovered/Not Resolved]
  - Drug ineffective [Not Recovered/Not Resolved]
  - Vitreous floaters [Recovering/Resolving]

NARRATIVE: CASE EVENT DATE: 20211113
